FAERS Safety Report 13965121 (Version 5)
Quarter: 2018Q1

REPORT INFORMATION
  Report Type: Report from Study
  Country: US (occurrence: US)
  Receive Date: 20170913
  Receipt Date: 20180306
  Transmission Date: 20180508
  Serious: No
  Sender: FDA-Public Use
  Company Number: US-INCYTE CORPORATION-2016IN004035

PATIENT

DRUGS (28)
  1. BENADRYL [Concomitant]
     Active Substance: DIPHENHYDRAMINE HYDROCHLORIDE
     Indication: PRURITUS
     Dosage: 25 MG, QHS
     Dates: start: 20170831
  2. PEGASYS [Concomitant]
     Active Substance: PEGINTERFERON ALFA-2A
     Dosage: 20 UG, EVERY WEEK
     Dates: start: 20171214, end: 20180105
  3. JAKAFI [Suspect]
     Active Substance: RUXOLITINIB
     Dosage: 10 MG, BID
     Route: 048
     Dates: start: 20170907
  4. IMODIUM [Concomitant]
     Active Substance: LOPERAMIDE HYDROCHLORIDE
     Indication: DIARRHOEA
     Dosage: 4 MG, Q4 HR, PRN
     Dates: start: 20170929
  5. HYDREA [Concomitant]
     Active Substance: HYDROXYUREA
     Indication: POLYCYTHAEMIA VERA
     Dosage: 1500 MG, QD
     Dates: start: 20150522
  6. METFORMIN [Concomitant]
     Active Substance: METFORMIN HYDROCHLORIDE
     Indication: DIABETES MELLITUS
     Dosage: 500 MG, BID
     Dates: start: 2003, end: 201708
  7. IBUPROFEN. [Concomitant]
     Active Substance: IBUPROFEN
     Indication: HEADACHE
     Dosage: 200 MG, PRN
     Dates: start: 20160812
  8. PEGASYS [Concomitant]
     Active Substance: PEGINTERFERON ALFA-2A
     Dosage: 10 UG, EVERY WEEK
     Dates: start: 20180111, end: 20180126
  9. JAKAFI [Suspect]
     Active Substance: RUXOLITINIB
     Dosage: 5 MG, BID
     Route: 048
     Dates: start: 20160903, end: 20161111
  10. JAKAFI [Suspect]
     Active Substance: RUXOLITINIB
     Dosage: 5 MG, QD
     Route: 048
     Dates: start: 20170815, end: 20170907
  11. ASPIRIN. [Concomitant]
     Active Substance: ASPIRIN
     Indication: POLYCYTHAEMIA VERA
     Dosage: 81 MG, QD
     Dates: start: 2012
  12. HYDREA [Concomitant]
     Active Substance: HYDROXYUREA
     Dosage: 500 MG, BID
     Dates: start: 20170803, end: 20170814
  13. HYDREA [Concomitant]
     Active Substance: HYDROXYUREA
     Dosage: 1500 MG, QD
     Dates: start: 20170810, end: 20170814
  14. ANAGRELIDE. [Concomitant]
     Active Substance: ANAGRELIDE HYDROCHLORIDE
     Indication: POLYCYTHAEMIA VERA
     Dosage: 0.5 MG, BID
     Route: 065
     Dates: start: 20170818, end: 20170825
  15. FERROUS SULFATE. [Concomitant]
     Active Substance: FERROUS SULFATE
     Indication: SUPPLEMENTATION THERAPY
     Dosage: 324 MG, QD
     Dates: start: 20160818, end: 20170818
  16. GLIPIZIDE. [Concomitant]
     Active Substance: GLIPIZIDE
     Indication: DIABETES MELLITUS
     Dosage: 10 MG, QD
     Dates: start: 2003, end: 201708
  17. PEGASYS [Concomitant]
     Active Substance: PEGINTERFERON ALFA-2A
     Indication: POLYCYTHAEMIA VERA
     Dosage: 90 UG EVERY WEEK
     Dates: start: 20170911, end: 20171027
  18. PEGASYS [Concomitant]
     Active Substance: PEGINTERFERON ALFA-2A
     Dosage: 60 UG, EVERY WEEK
     Dates: start: 20171027, end: 20171110
  19. JANUMET [Concomitant]
     Active Substance: METFORMIN HYDROCHLORIDE\SITAGLIPTIN PHOSPHATE
     Indication: DIABETES MELLITUS
     Dosage: 1 DF, BID
     Dates: start: 20180223
  20. JAKAFI [Suspect]
     Active Substance: RUXOLITINIB
     Indication: POLYCYTHAEMIA VERA
     Dosage: 10 MG, BID
     Route: 048
     Dates: start: 20160721, end: 20160821
  21. JAKAFI [Suspect]
     Active Substance: RUXOLITINIB
     Dosage: 10 MG, BID
     Route: 048
     Dates: start: 20161112, end: 20170217
  22. JAKAFI [Suspect]
     Active Substance: RUXOLITINIB
     Dosage: 1 TAB (5 MG IN AM,) 2 (5 MG TABS IN EVENING)
     Route: 048
     Dates: start: 20170218, end: 20170814
  23. HYDREA [Concomitant]
     Active Substance: HYDROXYUREA
     Dosage: 1000 MG, BID
     Dates: start: 20170907, end: 20170929
  24. PEGASYS [Concomitant]
     Active Substance: PEGINTERFERON ALFA-2A
     Dosage: 30 UG, EVERY WEEK
     Dates: start: 20171117, end: 20171207
  25. ESTRADIOL. [Concomitant]
     Active Substance: ESTRADIOL
     Indication: SUPPLEMENTATION THERAPY
     Dosage: 2 MG, QHS
     Dates: start: 20150331, end: 20170818
  26. HYDREA [Concomitant]
     Active Substance: HYDROXYUREA
     Dosage: 1000 MG, QHS
     Dates: start: 20170831, end: 20170909
  27. OTC SINUS MEDICATION [Concomitant]
     Indication: HEADACHE
     Dosage: 1 TABLET, PRN
     Dates: start: 20160812
  28. VITAMIN C [Concomitant]
     Active Substance: ASCORBIC ACID
     Indication: SUPPLEMENTATION THERAPY
     Dosage: 500 MG, QD
     Dates: start: 20160818, end: 20170818

REACTIONS (8)
  - Thrombocytosis [Not Recovered/Not Resolved]
  - Headache [Recovered/Resolved]
  - Oedema [Not Recovered/Not Resolved]
  - Weight increased [Not Recovered/Not Resolved]
  - Pain in jaw [Recovered/Resolved]
  - Diarrhoea [Not Recovered/Not Resolved]
  - Fatigue [Not Recovered/Not Resolved]
  - Palpitations [Recovered/Resolved]

NARRATIVE: CASE EVENT DATE: 20160812
